FAERS Safety Report 9260936 (Version 1)
Quarter: 2013Q2

REPORT INFORMATION
  Report Type: Spontaneous
  Country: US (occurrence: US)
  Receive Date: 20130429
  Receipt Date: 20130429
  Transmission Date: 20140414
  Serious: No
  Sender: FDA-Public Use
  Company Number: US-AMGEN-USASP2012028520

PATIENT
  Age: 85 Year
  Sex: Male
  Weight: 65 kg

DRUGS (6)
  1. SENSIPAR [Suspect]
     Indication: HYPERPARATHYROIDISM SECONDARY
     Dosage: 30 MG, UNK
     Route: 048
     Dates: start: 20120416, end: 20120420
  2. METOPROLOL [Concomitant]
     Indication: HYPERTENSION
     Dosage: 120 MG, UNK
     Route: 048
     Dates: start: 20120416
  3. LASIX                              /00032601/ [Concomitant]
     Dosage: 10 MG, UNK
     Route: 048
  4. HYDRALAZINE [Concomitant]
     Dosage: 100 MG, BID
     Route: 048
     Dates: start: 20120416
  5. DILTIAZEM [Concomitant]
     Dosage: 120 MG, UNK
     Route: 048
     Dates: start: 20120416
  6. DOXAZOSIN [Concomitant]
     Dosage: 2 MG, UNK
     Route: 048
     Dates: start: 20120416

REACTIONS (1)
  - Muscle spasms [Recovered/Resolved]
